FAERS Safety Report 5872504-6 (Version None)
Quarter: 2008Q3

REPORT INFORMATION
  Report Type: 
  Country: None (occurrence: None)
  Receive Date: 20080905
  Receipt Date: 20080826
  Transmission Date: 20090109
  Serious: Yes (Hospitalization)
  Sender: FDA-Public Use
  Company Number: FR-AMGEN-UK299013

PATIENT
  Sex: Male
  Weight: 70 kg

DRUGS (8)
  1. PANITUMUMAB [Suspect]
     Indication: COLORECTAL CANCER
     Route: 042
     Dates: start: 20080321
  2. FLUOROURACIL [Concomitant]
     Route: 042
     Dates: start: 20080321, end: 20080813
  3. LEUCOVORIN CALCIUM [Concomitant]
     Route: 042
     Dates: start: 20080321, end: 20080813
  4. IRINOTECAN HCL [Concomitant]
     Route: 042
     Dates: start: 20080321, end: 20080813
  5. SOLUPRED [Concomitant]
     Route: 048
     Dates: start: 20080502, end: 20080813
  6. PLITICAN [Concomitant]
     Route: 048
     Dates: start: 20080502, end: 20080813
  7. BICARBONATE [Concomitant]
     Route: 048
  8. SUCRALFATE [Concomitant]
     Route: 048

REACTIONS (1)
  - TRANSIENT ISCHAEMIC ATTACK [None]
